FAERS Safety Report 6040900-2 (Version None)
Quarter: 2009Q1

REPORT INFORMATION
  Report Type: 
  Country: None (occurrence: None)
  Receive Date: 20090116
  Receipt Date: 20090110
  Transmission Date: 20090719
  Serious: Yes (Other)
  Sender: FDA-Public Use
  Company Number: GB-JNJCH-2009001031

PATIENT
  Sex: Female

DRUGS (1)
  1. CALCOLD [Suspect]
     Indication: INFLUENZA
     Dosage: TEXT:2 SPOONFUL EVERY NIGHT
     Route: 048

REACTIONS (5)
  - DEPENDENCE [None]
  - DIARRHOEA [None]
  - INCORRECT DRUG ADMINISTRATION DURATION [None]
  - INSOMNIA [None]
  - MOOD ALTERED [None]
